FAERS Safety Report 8344536 (Version 2)
Quarter: 2013Q3

REPORT INFORMATION
  Report Type: Spontaneous
  Country: US (occurrence: US)
  Receive Date: 20120119
  Receipt Date: 20130809
  Transmission Date: 20140515
  Serious: Yes (Other)
  Sender: FDA-Public Use
  Company Number: US-ROCHE-791924

PATIENT
  Age: 18 Year
  Sex: Male
  Weight: 79.45 kg

DRUGS (2)
  1. ACCUTANE [Suspect]
     Indication: ACNE
     Route: 048
     Dates: start: 2001, end: 2003
  2. ACCUTANE [Suspect]
     Route: 048
     Dates: start: 20021008, end: 20030227

REACTIONS (9)
  - Crohn^s disease [Unknown]
  - Inflammatory bowel disease [Unknown]
  - Emotional distress [Unknown]
  - Irritable bowel syndrome [Unknown]
  - Haemorrhoids [Unknown]
  - Blood triglycerides increased [Unknown]
  - Blood cholesterol increased [Unknown]
  - Dry skin [Unknown]
  - Eczema [Unknown]
